FAERS Safety Report 11840214 (Version 1)
Quarter: 2015Q4

REPORT INFORMATION
  Report Type: Spontaneous
  Country: US (occurrence: None)
  Receive Date: 20151215
  Receipt Date: 20151215
  Transmission Date: 20160305
  Serious: Yes (Hospitalization)
  Sender: FDA-Public Use
  Company Number: None

PATIENT
  Age: 52 Year
  Sex: Male
  Weight: 79.8 kg

DRUGS (1)
  1. FLUDARABINE PHOSPHATE. [Suspect]
     Active Substance: FLUDARABINE PHOSPHATE
     Dates: end: 20151210

REACTIONS (6)
  - Rash [None]
  - Asthenia [None]
  - Diarrhoea [None]
  - Therapy cessation [None]
  - Pyrexia [None]
  - Bone marrow leukaemic cell infiltration [None]

NARRATIVE: CASE EVENT DATE: 20151211
